FAERS Safety Report 10386557 (Version 1)
Quarter: 2014Q1

REPORT INFORMATION
  Report Type: Spontaneous
  Country: US (occurrence: None)
  Receive Date: 20140306
  Receipt Date: 20140306
  Transmission Date: 20141002
  Serious: Yes (Death, Hospitalization)
  Sender: FDA-Public Use
  Company Number: 163-21880-13120864

PATIENT
  Age: 67 Year
  Sex: Female
  Weight: 96.16 kg

DRUGS (17)
  1. REVLIMID (LENALIDOMIDE) (10 MILLIGRAM, CAPSULES) [Suspect]
     Indication: PLASMA CELL MYELOMA
     Route: 048
     Dates: start: 201310, end: 20131126
  2. VELCADE (BORTEZOMIB) [Concomitant]
  3. PLAVIX (CLOPIDOGREL SULFATE) [Concomitant]
  4. TOPROL XL (METOPROLOL SUCCINATE) [Concomitant]
  5. NORCODONE/APAP (GALENIC/PARACETAMOL/CODEINE) [Concomitant]
  6. NEXIUM (ESOMEPRAZOLE) [Concomitant]
  7. LISINOPRIL [Concomitant]
  8. DURAGESIC (FENTANYL) (POULICE OR PATCH) [Concomitant]
  9. SCOPOLAMINE (HYOSCINE) [Concomitant]
  10. ZOFRAN (ONDANSETRON HYDROCHLORIDE) [Concomitant]
  11. ASPIRIN (ACETYLSALICYLIC ACID) (CHEWABLE TABLET) [Concomitant]
  12. ALPRAZOLAM [Concomitant]
  13. OSCAL/VITAMIN D (CALCITE D) [Concomitant]
  14. NORVASC (AMLODIPINE BESILATE) [Concomitant]
  15. MAXIDE (DYAZIDE) [Concomitant]
  16. COLACE (DOCUSATE SODIUM) [Concomitant]
  17. EFFEXOR XR (VENLAFAXINE HYDROCHLORIDE) (75 MILLIGRAM, CAPSULE) (VENLAFAXINE HYDROCHLORIDE) [Concomitant]

REACTIONS (1)
  - Pulmonary embolism [None]
